FAERS Safety Report 9322000 (Version 1)
Quarter: 2013Q2

REPORT INFORMATION
  Report Type: Spontaneous
  Country: IT (occurrence: None)
  Receive Date: 20130529
  Receipt Date: 20130529
  Transmission Date: 20140414
  Serious: Yes (Hospitalization)
  Sender: FDA-Public Use
  Company Number: 1724295

PATIENT
  Age: 42 Year
  Sex: Female

DRUGS (4)
  1. PHENOBARBITAL [Suspect]
     Indication: CONVULSION
  2. (THERAPEUTIC RADIOPHARMACEUTICALS) [Suspect]
     Indication: MALIGNANT MELANOMA
     Dosage: TOTAL DOSAGE OF 3000 CGY (UNKNOWN)
  3. (DEXAMETHASONE) [Concomitant]
  4. (MANNITOL) [Concomitant]

REACTIONS (1)
  - Erythema multiforme [None]
